FAERS Safety Report 18089724 (Version 2)
Quarter: 2020Q3

REPORT INFORMATION
  Report Type: Spontaneous
  Country: GB (occurrence: GB)
  Receive Date: 20200729
  Receipt Date: 20200819
  Transmission Date: 20201103
  Serious: Yes (Other)
  Sender: FDA-Public Use
  Company Number: GB-ASCEND THERAPEUTICS US, LLC-2087910

PATIENT
  Age: 53 Year
  Sex: Female
  Weight: 54 kg

DRUGS (4)
  1. OESTRODOSE (ESTRADIOL) [Suspect]
     Active Substance: ESTRADIOL
     Route: 062
     Dates: start: 20200604
  2. ESTROGEL [Suspect]
     Active Substance: ESTRADIOL
  3. UTROGESTAN (MICRONIZED PROGESTERONE), UNKNOWN [Concomitant]
  4. ESTROGEL [Suspect]
     Active Substance: ESTRADIOL
     Indication: HORMONE REPLACEMENT THERAPY
     Route: 062
     Dates: start: 20200604

REACTIONS (9)
  - Hot flush [Not Recovered/Not Resolved]
  - Dyspareunia [Unknown]
  - Urinary tract infection [Unknown]
  - Candida infection [Unknown]
  - Abdominal distension [Unknown]
  - Vaginal haemorrhage [Unknown]
  - Drug ineffective [Unknown]
  - Poor quality sleep [Unknown]
  - Menopausal symptoms [Not Recovered/Not Resolved]

NARRATIVE: CASE EVENT DATE: 20200616
